FAERS Safety Report 7550779-5 (Version None)
Quarter: 2011Q2

REPORT INFORMATION
  Report Type: 
  Country: None (occurrence: None)
  Receive Date: 20110616
  Receipt Date: 20110607
  Transmission Date: 20111010
  Serious: Yes (Death)
  Sender: FDA-Public Use
  Company Number: US-JNJFOC-20110603492

PATIENT
  Age: 67 Year
  Sex: Female

DRUGS (4)
  1. INH [Suspect]
     Indication: CHRONIC OBSTRUCTIVE PULMONARY DISEASE
     Route: 065
  2. DORIPENEM MONOHYDRATE [Suspect]
     Dosage: GIVEN OVER A 4 HOUR INFUSION
     Route: 041
  3. DORIPENEM MONOHYDRATE [Suspect]
     Indication: PNEUMONIA
     Route: 041
  4. COLISTIN SULFATE [Suspect]
     Indication: CHRONIC OBSTRUCTIVE PULMONARY DISEASE
     Route: 042

REACTIONS (1)
  - DRUG INEFFECTIVE [None]
